FAERS Safety Report 5887337-4 (Version None)
Quarter: 2008Q3

REPORT INFORMATION
  Report Type: 
  Country: None (occurrence: None)
  Receive Date: 20080917
  Receipt Date: 20080917
  Transmission Date: 20090109
  Serious: Yes (Life-Threatening, Hospitalization)
  Sender: FDA-Public Use
  Company Number: None

PATIENT
  Age: 84 Year
  Sex: Male
  Weight: 77.1115 kg

DRUGS (1)
  1. VANCOMYCIN [Suspect]
     Indication: PROPHYLAXIS
     Dosage: X 1 IV
     Route: 042
     Dates: start: 20080828

REACTIONS (1)
  - CONVULSION [None]
